FAERS Safety Report 4966130-0 (Version None)
Quarter: 2006Q2

REPORT INFORMATION
  Report Type: 
  Country: None (occurrence: None)
  Receive Date: 20060403
  Receipt Date: 20060324
  Transmission Date: 20061013
  Serious: Yes (Death, Other)
  Sender: FDA-Public Use
  Company Number: 163-20785-06010357

PATIENT
  Age: 75 Year
  Sex: Male

DRUGS (4)
  1. THALOMID [Suspect]
     Indication: MULTIPLE MYELOMA
     Dosage: 100 MG, DAILY, ORAL
     Route: 048
     Dates: start: 20051219, end: 20050101
  2. THALOMID [Suspect]
     Indication: PLASMACYTOMA
     Dosage: 100 MG, DAILY, ORAL
     Route: 048
     Dates: start: 20051219, end: 20050101
  3. DECADRON [Concomitant]
  4. CYTOXAN [Concomitant]

REACTIONS (3)
  - DISEASE PROGRESSION [None]
  - ENCEPHALITIS HERPES [None]
  - LEUKAEMIA PLASMACYTIC [None]
